FAERS Safety Report 8034535-X (Version None)
Quarter: 2012Q1

REPORT INFORMATION
  Report Type: 
  Country: None (occurrence: None)
  Receive Date: 20120110
  Receipt Date: 20111228
  Transmission Date: 20120608
  Serious: Yes (Hospitalization)
  Sender: FDA-Public Use
  Company Number: TR-MEDIMMUNE-MEDI-0014372

PATIENT
  Sex: Male
  Weight: 5 kg

DRUGS (2)
  1. SYNAGIS [Suspect]
     Route: 030
     Dates: start: 20111215, end: 20111215
  2. SYNAGIS [Suspect]
     Route: 030
     Dates: start: 20111011, end: 20111011

REACTIONS (2)
  - WHEEZING [None]
  - RESPIRATORY TRACT INFECTION [None]
